FAERS Safety Report 12930246 (Version 1)
Quarter: 2016Q4

REPORT INFORMATION
  Report Type: Spontaneous
  Country: US (occurrence: US)
  Receive Date: 20161110
  Receipt Date: 20161110
  Transmission Date: 20170207
  Serious: No
  Sender: FDA-Public Use
  Company Number: None

PATIENT
  Age: 75 Year
  Sex: Female

DRUGS (1)
  1. ENBREL [Suspect]
     Active Substance: ETANERCEPT
     Indication: RHEUMATOID ARTHRITIS

REACTIONS (5)
  - Condition aggravated [None]
  - Arthralgia [None]
  - Peripheral swelling [None]
  - Pain in extremity [None]
  - Joint swelling [None]

NARRATIVE: CASE EVENT DATE: 20161110
